FAERS Safety Report 13185076 (Version 2)
Quarter: 2017Q1

REPORT INFORMATION
  Report Type: Spontaneous
  Country: JP (occurrence: JP)
  Receive Date: 20170203
  Receipt Date: 20170210
  Transmission Date: 20170428
  Serious: Yes (Hospitalization)
  Sender: FDA-Public Use
  Company Number: JP-MYLANLABS-2017M1005943

PATIENT

DRUGS (4)
  1. METHOTREXATE. [Suspect]
     Active Substance: METHOTREXATE
     Indication: RHEUMATOID ARTHRITIS
     Dosage: 8 MG/WEEK
     Route: 048
     Dates: start: 201101
  2. PREDNISOLONE. [Concomitant]
     Active Substance: PREDNISOLONE
     Indication: RHEUMATOID ARTHRITIS
     Dosage: 5 MG/DAY
     Route: 048
     Dates: start: 201008
  3. FOLIC ACID. [Concomitant]
     Active Substance: FOLIC ACID
     Indication: PRODUCT USED FOR UNKNOWN INDICATION
     Dosage: 5 MG/WEEK
     Route: 065
     Dates: start: 201003
  4. METHOTREXATE. [Suspect]
     Active Substance: METHOTREXATE
     Dosage: 6 MG/WEEK
     Route: 048
     Dates: start: 201003

REACTIONS (3)
  - Stomatitis [Recovered/Resolved]
  - Skin erosion [Recovered/Resolved]
  - Pancytopenia [Recovered/Resolved]
